FAERS Safety Report 20987961 (Version 3)
Quarter: 2022Q3

REPORT INFORMATION
  Report Type: Report from Study
  Country: US (occurrence: US)
  Receive Date: 20220621
  Receipt Date: 20220926
  Transmission Date: 20221026
  Serious: Yes (Death, Hospitalization, Other)
  Sender: FDA-Public Use
  Company Number: US-OTSUKA-2022_032081

PATIENT
  Age: 61 Year
  Sex: Male

DRUGS (2)
  1. CEDAZURIDINE\DECITABINE [Suspect]
     Active Substance: CEDAZURIDINE\DECITABINE
     Indication: Myelodysplastic syndrome
     Dosage: 1 DF, QD ON DAYS 1-5 OF EVERY 28 DAYS CYCLE
     Route: 065
     Dates: start: 20220603, end: 20220808
  2. AMOXICILLIN\CLAVULANIC ACID [Concomitant]
     Active Substance: AMOXICILLIN\CLAVULANIC ACID
     Indication: Product used for unknown indication
     Dosage: UNK
     Route: 065

REACTIONS (8)
  - Immunodeficiency [Fatal]
  - Myelodysplastic syndrome [Fatal]
  - Septic shock [Fatal]
  - Ear pain [Unknown]
  - Gingival bleeding [Unknown]
  - Oropharyngeal pain [Unknown]
  - Platelet count decreased [Unknown]
  - Haemoglobin decreased [Recovered/Resolved]

NARRATIVE: CASE EVENT DATE: 20220608
